FAERS Safety Report 25190298 (Version 2)
Quarter: 2025Q2

REPORT INFORMATION
  Report Type: Spontaneous
  Country: CN (occurrence: CN)
  Receive Date: 20250411
  Receipt Date: 20250415
  Transmission Date: 20250716
  Serious: Yes (Hospitalization)
  Sender: MERCK SHARP AND DOHME
  Company Number: CN-009507513-2273809

PATIENT
  Age: 74 Year
  Sex: Male
  Weight: 50.5 kg

DRUGS (1)
  1. PEMBROLIZUMAB [Suspect]
     Active Substance: PEMBROLIZUMAB
     Indication: Squamous cell carcinoma of lung
     Dosage: 200 MG, EVERY 21 DAYS
     Route: 041
     Dates: start: 20250301, end: 20250301

REACTIONS (4)
  - Immune-mediated lung disease [Recovering/Resolving]
  - Productive cough [Recovering/Resolving]
  - Lymphangiosis carcinomatosa [Unknown]
  - Pneumonitis [Recovering/Resolving]

NARRATIVE: CASE EVENT DATE: 20250320
